FAERS Safety Report 10006322 (Version 1)
Quarter: 2014Q1

REPORT INFORMATION
  Report Type: Spontaneous
  Country: US (occurrence: US)
  Receive Date: 20140313
  Receipt Date: 20140313
  Transmission Date: 20141002
  Serious: Yes (Death)
  Sender: FDA-Public Use
  Company Number: US-BAYER-2014-036384

PATIENT
  Sex: Female

DRUGS (3)
  1. YASMIN [Suspect]
     Dosage: UNK
     Dates: start: 2011, end: 201201
  2. YAZ [Suspect]
     Dosage: UNK
     Dates: start: 2011, end: 201201
  3. OCELLA [Suspect]
     Dosage: UNK
     Dates: start: 2011, end: 201201

REACTIONS (9)
  - Pulmonary embolism [Fatal]
  - Abdominal pain [None]
  - Pain [Fatal]
  - Injury [Fatal]
  - General physical health deterioration [Fatal]
  - Anxiety [None]
  - Emotional distress [None]
  - Deformity [None]
  - Pain [None]
